FAERS Safety Report 18978410 (Version 1)
Quarter: 2021Q1

REPORT INFORMATION
  Report Type: Spontaneous
  Country: DE (occurrence: DE)
  Receive Date: 20210307
  Receipt Date: 20210307
  Transmission Date: 20210420
  Serious: Yes (Hospitalization, Other)
  Sender: FDA-Public Use
  Company Number: DE-SA-2021SA072436

PATIENT
  Age: 65 Year
  Sex: Male
  Weight: 95 kg

DRUGS (10)
  1. FLUOROURACIL. [Suspect]
     Active Substance: FLUOROURACIL
     Dosage: UNK
  2. CARBOPLATIN. [Suspect]
     Active Substance: CARBOPLATIN
     Dosage: UNK
  3. METOCLOPRAMIDE. [Concomitant]
     Active Substance: METOCLOPRAMIDE
     Dosage: 10 MG, TID
  4. FOLINIS [Suspect]
     Active Substance: MENOTROPINS
     Dosage: UNK, 11?AUG?2020
  5. AMLODIPINE [Concomitant]
     Active Substance: AMLODIPINE BESYLATE
     Dosage: 10 MG, 0?0?0.5?0
  6. PANTOPRAZOLE [Concomitant]
     Active Substance: PANTOPRAZOLE
     Dosage: 40 MG, QD
  7. IRINOTECAN [Suspect]
     Active Substance: IRINOTECAN
     Dosage: UNK, 11?AUG?2021
  8. PACLITAXEL. [Suspect]
     Active Substance: PACLITAXEL
     Dosage: UNK, 11?MAR?2020
  9. DOCETAXEL. [Suspect]
     Active Substance: DOCETAXEL
     Dosage: JUN?2020
  10. ENALAPRIL [Concomitant]
     Active Substance: ENALAPRIL
     Dosage: 30 MG, 0.6?0?0.3?0

REACTIONS (9)
  - Anaemia [Unknown]
  - Peripheral coldness [Unknown]
  - Paraesthesia [Unknown]
  - General physical health deterioration [Unknown]
  - Nausea [Unknown]
  - Leukopenia [Unknown]
  - Malaise [Unknown]
  - Sleep disorder [Unknown]
  - Dizziness [Unknown]
